FAERS Safety Report 16899459 (Version 2)
Quarter: 2019Q4

REPORT INFORMATION
  Report Type: Spontaneous
  Country: US (occurrence: US)
  Receive Date: 20191009
  Receipt Date: 20191021
  Transmission Date: 20200122
  Serious: Yes (Hospitalization, Congenital Anomaly, Other)
  Sender: FDA-Public Use
  Company Number: US-PFIZER INC-2019430316

PATIENT
  Sex: Male
  Weight: 1.36 kg

DRUGS (1)
  1. METHOTREXATE SODIUM. [Suspect]
     Active Substance: METHOTREXATE SODIUM
     Indication: ABORTION INDUCED
     Dosage: UNK
     Route: 064

REACTIONS (9)
  - Multiple congenital abnormalities [Unknown]
  - Low set ears [Unknown]
  - Maternal exposure during pregnancy [Unknown]
  - Deformity [Unknown]
  - Clinodactyly [Unknown]
  - Synostosis [Unknown]
  - High arched palate [Unknown]
  - Premature baby [Unknown]
  - Skull malformation [Unknown]
